FAERS Safety Report 9184888 (Version 1)
Quarter: 2013Q1

REPORT INFORMATION
  Report Type: Spontaneous
  Country: US (occurrence: US)
  Receive Date: 20130325
  Receipt Date: 20130325
  Transmission Date: 20140127
  Serious: Yes (Hospitalization, Other)
  Sender: FDA-Public Use
  Company Number: US-ABBOTT-13P-163-1063995-00

PATIENT
  Sex: Female

DRUGS (5)
  1. DEPAKOTE [Suspect]
  2. DIOVAN [Suspect]
  3. BABY ASPIRIN [Suspect]
  4. FLECTOR [Suspect]
     Indication: PRODUCT USED FOR UNKNOWN INDICATION
  5. PREVACID [Concomitant]

REACTIONS (1)
  - Gastritis [Unknown]
